FAERS Safety Report 20126532 (Version 2)
Quarter: 2021Q4

REPORT INFORMATION
  Report Type: Spontaneous
  Country: JP (occurrence: JP)
  Receive Date: 20211129
  Receipt Date: 20211221
  Transmission Date: 20220303
  Serious: Yes (Hospitalization)
  Sender: FDA-Public Use
  Company Number: JP-FERRINGPH-2021FE07406

PATIENT
  Age: 9 Decade
  Sex: Male

DRUGS (3)
  1. DEGARELIX [Suspect]
     Active Substance: DEGARELIX
     Indication: Prostate cancer
     Dosage: UNK
     Route: 058
  2. XTANDI [Suspect]
     Active Substance: ENZALUTAMIDE
     Indication: Prostate cancer
     Dosage: 80 MG, 1 TIME DAILY
     Route: 048
  3. ERLEADA [Concomitant]
     Active Substance: APALUTAMIDE
     Dosage: UNK, PER ORAL NOS
     Route: 048

REACTIONS (2)
  - Dysphagia [Unknown]
  - Fatigue [Unknown]
